FAERS Safety Report 5372677-8 (Version None)
Quarter: 2007Q2

REPORT INFORMATION
  Report Type: 
  Country: None (occurrence: None)
  Receive Date: 20070626
  Receipt Date: 20070618
  Transmission Date: 20071010
  Serious: Yes (Other)
  Sender: FDA-Public Use
  Company Number: CHNY2007DE01946

PATIENT
  Age: 60 Year
  Sex: Male
  Weight: 112 kg

DRUGS (1)
  1. LAMISIL [Suspect]
     Indication: TINEA PEDIS
     Dosage: TOPICAL
     Route: 061
     Dates: start: 20070308, end: 20070308

REACTIONS (8)
  - CAUSTIC INJURY [None]
  - CHEMICAL BURN OF SKIN [None]
  - ECONOMIC PROBLEM [None]
  - GAIT DISTURBANCE [None]
  - HYPERSENSITIVITY [None]
  - OPEN WOUND [None]
  - PAIN IN EXTREMITY [None]
  - SKIN EXFOLIATION [None]
